FAERS Safety Report 6506888-2 (Version None)
Quarter: 2009Q4

REPORT INFORMATION
  Report Type: 
  Country: None (occurrence: None)
  Receive Date: 20091221
  Receipt Date: 20091214
  Transmission Date: 20100525
  Serious: Yes (Death, Hospitalization)
  Sender: FDA-Public Use
  Company Number: JP-ELI_LILLY_AND_COMPANY-JP200911006694

PATIENT
  Age: 79 Year
  Sex: Female

DRUGS (3)
  1. ALIMTA [Suspect]
     Indication: BRONCHIOLOALVEOLAR CARCINOMA
     Dosage: 500 MG/M2, OTHER
     Route: 042
     Dates: start: 20091009, end: 20091009
  2. PANVITAN [Concomitant]
     Route: 048
  3. VITAMIN B12 NOS [Concomitant]

REACTIONS (3)
  - INTERSTITIAL LUNG DISEASE [None]
  - PYREXIA [None]
  - RASH [None]
